FAERS Safety Report 11484197 (Version 2)
Quarter: 2015Q3

REPORT INFORMATION
  Report Type: Spontaneous
  Country: US (occurrence: US)
  Receive Date: 20150903
  Receipt Date: 20150903
  Transmission Date: 20151125
  Serious: Yes (Hospitalization)
  Sender: FDA-Public Use
  Company Number: US-ELI_LILLY_AND_COMPANY-US201204002310

PATIENT
  Age: 48 Year
  Sex: Male
  Weight: 101.59 kg

DRUGS (17)
  1. SEROQUEL XR [Concomitant]
     Active Substance: QUETIAPINE FUMARATE
  2. ATIVAN [Concomitant]
     Active Substance: LORAZEPAM
     Dosage: 1 MG, TID
  3. ATENOLOL. [Concomitant]
     Active Substance: ATENOLOL
  4. CYMBALTA [Suspect]
     Active Substance: DULOXETINE HYDROCHLORIDE
     Dosage: 120 MG, QD
  5. MULTIVITAMIN [Concomitant]
     Active Substance: VITAMINS
  6. ATIVAN [Concomitant]
     Active Substance: LORAZEPAM
     Dosage: 0.5 MG, TID
  7. ABILIFY [Concomitant]
     Active Substance: ARIPIPRAZOLE
  8. MICRONASE [Concomitant]
     Active Substance: GLYBURIDE
  9. LEVEMIR [Concomitant]
     Active Substance: INSULIN DETEMIR
  10. LIPITOR [Concomitant]
     Active Substance: ATORVASTATIN CALCIUM
  11. GLUCOPHAGE [Concomitant]
     Active Substance: METFORMIN HYDROCHLORIDE
  12. CYMBALTA [Suspect]
     Active Substance: DULOXETINE HYDROCHLORIDE
     Indication: DEPRESSION
     Dosage: 90 MG, QD
     Route: 048
     Dates: start: 201110
  13. ATIVAN [Concomitant]
     Active Substance: LORAZEPAM
     Dosage: 2 MG, EACH EVENING
  14. ATIVAN [Concomitant]
     Active Substance: LORAZEPAM
     Dosage: 1 MG, EACH EVENING
  15. BUSPAR [Concomitant]
     Active Substance: BUSPIRONE HYDROCHLORIDE
  16. OMEGA-3 FATTY ACIDS [Concomitant]
     Active Substance: OMEGA-3 FATTY ACIDS
  17. ZESTRIL [Concomitant]
     Active Substance: LISINOPRIL

REACTIONS (3)
  - Somnolence [Recovered/Resolved]
  - Nervousness [Recovered/Resolved]
  - Suicidal ideation [Recovered/Resolved]

NARRATIVE: CASE EVENT DATE: 20120302
